FAERS Safety Report 4919504-8 (Version None)
Quarter: 2006Q1

REPORT INFORMATION
  Report Type: 
  Country: None (occurrence: None)
  Receive Date: 20060222
  Receipt Date: 20050401
  Transmission Date: 20060701
  Serious: Yes (Hospitalization, Other)
  Sender: FDA-Public Use
  Company Number: US-MERCK-0504USA00487

PATIENT
  Age: 50 Year
  Sex: Female

DRUGS (11)
  1. VIOXX [Suspect]
     Route: 048
     Dates: start: 19990101
  2. SOMA [Concomitant]
     Indication: BACK PAIN
     Route: 065
  3. PREMARIN [Concomitant]
     Route: 065
  4. LASIX [Concomitant]
     Route: 065
  5. POTASSIUM CHLORIDE [Concomitant]
     Route: 065
  6. TOPROL-XL [Concomitant]
     Route: 065
  7. EFFEXOR XR [Concomitant]
     Route: 065
  8. TRAZODONE HYDROCHLORIDE [Concomitant]
     Indication: SLEEP DISORDER
     Route: 065
  9. PRILOSEC [Concomitant]
     Route: 065
  10. NEURONTIN [Concomitant]
     Route: 065
  11. ELOCON [Concomitant]
     Route: 065

REACTIONS (18)
  - ANGINA PECTORIS [None]
  - ANGINA UNSTABLE [None]
  - ANGIOPATHY [None]
  - CENTRAL OBESITY [None]
  - CEREBROVASCULAR ACCIDENT [None]
  - CHEST DISCOMFORT [None]
  - CONVERSION DISORDER [None]
  - CORONARY ARTERY DISEASE [None]
  - DIZZINESS [None]
  - FALL [None]
  - HEADACHE [None]
  - LETHARGY [None]
  - LOSS OF CONSCIOUSNESS [None]
  - MYOCARDIAL INFARCTION [None]
  - SINUS BRADYCARDIA [None]
  - TRANSIENT ISCHAEMIC ATTACK [None]
  - UNRESPONSIVE TO VERBAL STIMULI [None]
  - VENTRICULAR EXTRASYSTOLES [None]
